FAERS Safety Report 24977058 (Version 1)
Quarter: 2025Q1

REPORT INFORMATION
  Report Type: Spontaneous
  Country: GB (occurrence: GB)
  Receive Date: 20250217
  Receipt Date: 20250217
  Transmission Date: 20250409
  Serious: No
  Sender: ALEXION PHARMACEUTICALS
  Company Number: GB-AstraZeneca-2007GB02469

PATIENT
  Age: 44 Year

DRUGS (1)
  1. NEXIUM [Suspect]
     Active Substance: ESOMEPRAZOLE MAGNESIUM

REACTIONS (11)
  - Ear infection [Unknown]
  - Influenza [Unknown]
  - Oscillopsia [Unknown]
  - Ataxia [Unknown]
  - Dysphagia [Unknown]
  - Weight decreased [Unknown]
  - Tinnitus [Unknown]
  - Vision blurred [Unknown]
  - Ear disorder [Unknown]
  - Platelet count abnormal [Unknown]
  - Adverse event [Unknown]
